FAERS Safety Report 6582711-5 (Version None)
Quarter: 2010Q1

REPORT INFORMATION
  Report Type: 
  Country: None (occurrence: None)
  Receive Date: 20100203
  Receipt Date: 20100120
  Transmission Date: 20100710
  Serious: Yes (Other)
  Sender: FDA-Public Use
  Company Number: TRP_06130_2009

PATIENT
  Sex: Male

DRUGS (3)
  1. RIBASPHERE [Suspect]
     Indication: HEPATITIS C
     Dosage: (1200 MG, DAILY)
     Dates: start: 20090130
  2. PEGASYS [Suspect]
     Indication: HEPATITIS C
     Dosage: (180 ?G 1X/WEEK SUBCUTANEOUS)
     Route: 058
     Dates: start: 20090130, end: 20100101
  3. INSULIN [Concomitant]

REACTIONS (22)
  - APPLICATION SITE HYPERSENSITIVITY [None]
  - BLOOD GLUCOSE FLUCTUATION [None]
  - BLOOD GLUCOSE INCREASED [None]
  - CANDIDIASIS [None]
  - DEAFNESS [None]
  - DECREASED INTEREST [None]
  - DISTURBANCE IN ATTENTION [None]
  - DRUG DOSE OMISSION [None]
  - DYSGEUSIA [None]
  - ERYTHEMA [None]
  - FOOD POISONING [None]
  - INCORRECT DOSE ADMINISTERED [None]
  - INCORRECT PRODUCT STORAGE [None]
  - INSOMNIA [None]
  - PNEUMONIA [None]
  - PRODUCT QUALITY ISSUE [None]
  - PRURITUS [None]
  - SINUSITIS [None]
  - THIRST [None]
  - TINNITUS [None]
  - VOMITING [None]
  - WEIGHT DECREASED [None]
